FAERS Safety Report 19034581 (Version 1)
Quarter: 2021Q1

REPORT INFORMATION
  Report Type: Spontaneous
  Country: US (occurrence: US)
  Receive Date: 20210320
  Receipt Date: 20210320
  Transmission Date: 20210420
  Serious: No
  Sender: FDA-Public Use
  Company Number: US-ORGANON-O2103USA000737

PATIENT
  Sex: Female

DRUGS (1)
  1. NEXPLANON [Suspect]
     Active Substance: ETONOGESTREL
     Dosage: 1 DOSAGE FORM (IMPLANT; 68 MG)
     Route: 059
     Dates: start: 2018

REACTIONS (3)
  - Incorrect product administration duration [Unknown]
  - Product prescribing issue [Unknown]
  - No adverse event [Unknown]
